FAERS Safety Report 10046484 (Version 1)
Quarter: 2014Q1

REPORT INFORMATION
  Report Type: Spontaneous
  Country: US (occurrence: US)
  Receive Date: 20140331
  Receipt Date: 20140331
  Transmission Date: 20141002
  Serious: No
  Sender: FDA-Public Use
  Company Number: US-BIOGENIDEC-2014BI027852

PATIENT
  Age: 71 Year
  Sex: Male

DRUGS (11)
  1. TECFIDERA [Suspect]
     Indication: MULTIPLE SCLEROSIS
     Route: 048
     Dates: start: 20140304
  2. AMOXICILLIN [Concomitant]
  3. CALCIUM + D3 [Concomitant]
  4. CIPRO [Concomitant]
  5. CRANBERRY [Concomitant]
  6. FINASTERIDE [Concomitant]
  7. HIPREX [Concomitant]
  8. LISINOPRIL [Concomitant]
  9. TOPROL XL [Concomitant]
  10. VESICARE [Concomitant]
  11. VITAMIN D [Concomitant]

REACTIONS (4)
  - Flatulence [Recovered/Resolved]
  - Pollakiuria [Recovered/Resolved]
  - Urine odour abnormal [Recovered/Resolved]
  - Diarrhoea [Recovered/Resolved]
